FAERS Safety Report 8785828 (Version 1)
Quarter: 2012Q4

REPORT INFORMATION
  Report Type: Spontaneous
  Country: AT (occurrence: None)
  Receive Date: 20120905
  Receipt Date: 20120905
  Transmission Date: 20130627
  Serious: Yes (Hospitalization)
  Sender: FDA-Public Use
  Company Number: ACO_31731_2012

PATIENT
  Age: 2 Year
  Sex: Male

DRUGS (1)
  1. FAMPYRA [Suspect]
     Route: 048
     Dates: start: 20120426, end: 20120426

REACTIONS (6)
  - Accidental exposure to product by child [None]
  - Agitation [None]
  - Mydriasis [None]
  - Hyperhidrosis [None]
  - Sinus tachycardia [None]
  - Tremor [None]
